FAERS Safety Report 20067070 (Version 1)
Quarter: 2021Q4

REPORT INFORMATION
  Report Type: Spontaneous
  Country: JP (occurrence: JP)
  Receive Date: 20211115
  Receipt Date: 20211115
  Transmission Date: 20220303
  Serious: Yes (Life-Threatening, Hospitalization, Other)
  Sender: FDA-Public Use
  Company Number: JP-MLMSERVICE-20211027-3182491-1

PATIENT
  Age: 2 Year
  Sex: Male

DRUGS (5)
  1. ETOPOSIDE [Suspect]
     Active Substance: ETOPOSIDE
     Indication: Acute myeloid leukaemia
  2. METHOTREXATE [Suspect]
     Active Substance: METHOTREXATE
     Indication: Acute myeloid leukaemia
     Route: 037
  3. MITOXANTRONE [Suspect]
     Active Substance: MITOXANTRONE HYDROCHLORIDE
     Indication: Acute myeloid leukaemia
  4. HYDROCORTISONE [Suspect]
     Active Substance: HYDROCORTISONE
     Indication: Acute myeloid leukaemia
     Route: 037
  5. CYTARABINE [Suspect]
     Active Substance: CYTARABINE
     Indication: Acute myeloid leukaemia
     Dosage: 25 MG
     Route: 037

REACTIONS (7)
  - Condition aggravated [Recovered/Resolved]
  - Hypernatraemia [Recovered/Resolved]
  - Hypovolaemic shock [Recovered/Resolved]
  - Metabolic acidosis [Recovered/Resolved]
  - Gastroenteritis adenovirus [Recovered/Resolved]
  - Adenovirus reactivation [Recovered/Resolved]
  - Myelosuppression [Recovered/Resolved]
